FAERS Safety Report 4605647-5 (Version None)
Quarter: 2005Q1

REPORT INFORMATION
  Report Type: 
  Country: None (occurrence: None)
  Receive Date: 20050310
  Receipt Date: 20041228
  Transmission Date: 20050727
  Serious: No
  Sender: FDA-Public Use
  Company Number: US-BRISTOL-MYERS SQUIBB COMPANY-12810859

PATIENT
  Age: 22 Year

DRUGS (3)
  1. MONISTAT [Suspect]
     Indication: VAGINAL MYCOSIS
     Route: 067
     Dates: start: 20041227, end: 20041227
  2. CLARINEX [Concomitant]
  3. YASMIN [Concomitant]

REACTIONS (2)
  - VAGINAL BURNING SENSATION [None]
  - VULVAL OEDEMA [None]
